FAERS Safety Report 6423562-1 (Version None)
Quarter: 2009Q4

REPORT INFORMATION
  Report Type: 
  Country: None (occurrence: None)
  Receive Date: 20091028
  Receipt Date: 20091016
  Transmission Date: 20100525
  Serious: Yes (Death)
  Sender: FDA-Public Use
  Company Number: 007755

PATIENT
  Sex: Male

DRUGS (4)
  1. SAMSCA [Suspect]
     Indication: HYPONATRAEMIA
     Dosage: 15 MG, QD, ORAL, 30 MG, QD, ORAL
     Route: 048
  2. CEFOTAXIME SODIUM [Concomitant]
  3. SOMATOSTATIN (SOMATOSTATIN) [Concomitant]
  4. DIURETICS [Concomitant]

REACTIONS (3)
  - HYPOVOLAEMIC SHOCK [None]
  - OESOPHAGEAL VARICES HAEMORRHAGE [None]
  - OFF LABEL USE [None]
